FAERS Safety Report 7668935-4 (Version None)
Quarter: 2011Q3

REPORT INFORMATION
  Report Type: 
  Country: None (occurrence: None)
  Receive Date: 20110808
  Receipt Date: 20110721
  Transmission Date: 20111222
  Serious: Yes (Hospitalization, Congenital Anomaly)
  Sender: FDA-Public Use
  Company Number: US-GLAXOSMITHKLINE-A0929169A

PATIENT
  Sex: Male

DRUGS (3)
  1. ZOFRAN [Concomitant]
     Route: 064
  2. PAXIL [Suspect]
     Indication: PRODUCT USED FOR UNKNOWN INDICATION
     Route: 064
  3. VALTREX [Concomitant]
     Route: 064

REACTIONS (9)
  - CONGENITAL GENITOURINARY ABNORMALITY [None]
  - MATERNAL EXPOSURE DURING PREGNANCY [None]
  - FAILURE TO THRIVE [None]
  - BODY HEIGHT BELOW NORMAL [None]
  - CONGENITAL RENAL DISORDER [None]
  - HEPATOSPLENOMEGALY [None]
  - CARDIAC DISORDER [None]
  - CHRONIC HEPATITIS [None]
  - PULMONARY VALVE STENOSIS CONGENITAL [None]
